FAERS Safety Report 6207319-2 (Version None)
Quarter: 2009Q2

REPORT INFORMATION
  Report Type: 
  Country: None (occurrence: None)
  Receive Date: 20090526
  Receipt Date: 20090507
  Transmission Date: 20091009
  Serious: Yes (Disabling, Other)
  Sender: FDA-Public Use
  Company Number: 2004014973

PATIENT
  Sex: Female

DRUGS (7)
  1. ZYRTEC [Suspect]
     Indication: ILL-DEFINED DISORDER
  2. ZOLOFT [Suspect]
     Indication: ILL-DEFINED DISORDER
  3. CELEBREX [Suspect]
     Indication: ILL-DEFINED DISORDER
  4. NEURONTIN [Suspect]
     Indication: ILL-DEFINED DISORDER
  5. LIPITOR [Suspect]
     Indication: ILL-DEFINED DISORDER
  6. GLUCOTROL [Suspect]
     Indication: ILL-DEFINED DISORDER
  7. BEXTRA [Concomitant]

REACTIONS (20)
  - ABDOMINAL HERNIA REPAIR [None]
  - ABDOMINAL WOUND DEHISCENCE [None]
  - BRAIN INJURY [None]
  - COMA [None]
  - DIABETES MELLITUS [None]
  - DYSGRAPHIA [None]
  - ECONOMIC PROBLEM [None]
  - FALL [None]
  - GANGRENE [None]
  - INCORRECT DOSE ADMINISTERED [None]
  - NERVOUS SYSTEM DISORDER [None]
  - PAIN [None]
  - POST PROCEDURAL COMPLICATION [None]
  - POST PROCEDURAL INFECTION [None]
  - READING DISORDER [None]
  - RESUSCITATION [None]
  - STAPHYLOCOCCAL INFECTION [None]
  - WEIGHT INCREASED [None]
  - WHEELCHAIR USER [None]
  - WRONG TECHNIQUE IN DRUG USAGE PROCESS [None]
